FAERS Safety Report 6213566-6 (Version None)
Quarter: 2009Q2

REPORT INFORMATION
  Report Type: 
  Country: None (occurrence: None)
  Receive Date: 20090601
  Receipt Date: 20090519
  Transmission Date: 20091009
  Serious: Yes (Other)
  Sender: FDA-Public Use
  Company Number: IMP_04395_2009

PATIENT
  Age: 11 Year
  Sex: Male

DRUGS (4)
  1. CHLOROQUINE  (CHLOROQUINE) 250 MG [Suspect]
     Indication: DERMATOMYOSITIS
     Dosage: (1250 MG QD) ; (FIVE 250 MG CAPSULES DAILY)) ; (250 MG)
  2. PREDNISONE [Concomitant]
  3. CALCIUM CARBONATE [Concomitant]
  4. VITAMIN D [Concomitant]

REACTIONS (4)
  - ACCIDENTAL OVERDOSE [None]
  - EYELASH DISCOLOURATION [None]
  - HAIR COLOUR CHANGES [None]
  - WRONG DRUG ADMINISTERED [None]
